FAERS Safety Report 6557537-9 (Version None)
Quarter: 2010Q1

REPORT INFORMATION
  Report Type: 
  Country: None (occurrence: None)
  Receive Date: 20100129
  Receipt Date: 20100125
  Transmission Date: 20100710
  Serious: Yes (Other)
  Sender: FDA-Public Use
  Company Number: FR-ROCHE-681439

PATIENT
  Sex: Female

DRUGS (6)
  1. ROCEPHIN [Suspect]
     Indication: DRUG USE FOR UNKNOWN INDICATION
     Dosage: 1GRAM/3.5 ML POWDER FOR SOLUTION FOR INJECTION
     Route: 030
     Dates: start: 20091231, end: 20100110
  2. PREVISCAN [Suspect]
     Indication: ATRIAL FIBRILLATION
     Route: 048
     Dates: end: 20100104
  3. TEMGESIC [Concomitant]
  4. CORDARONE [Concomitant]
  5. CYMBALTA [Concomitant]
  6. NITROGLYCERIN [Concomitant]

REACTIONS (3)
  - CONJUNCTIVAL HAEMORRHAGE [None]
  - HAEMATURIA [None]
  - INTERNATIONAL NORMALISED RATIO INCREASED [None]
